FAERS Safety Report 7710574-0 (Version None)
Quarter: 2011Q3

REPORT INFORMATION
  Report Type: 
  Country: None (occurrence: None)
  Receive Date: 20110825
  Receipt Date: 20110815
  Transmission Date: 20111222
  Serious: No
  Sender: FDA-Public Use
  Company Number: US-B.I. PHARMACEUTICALS,INC./RIDGEFIELD-2011-BP-17502BP

PATIENT
  Sex: Female

DRUGS (21)
  1. FISH OIL [Concomitant]
     Indication: CARDIAC DISORDER
     Route: 048
  2. CRESTOR [Concomitant]
     Indication: ARTERIAL OCCLUSIVE DISEASE
     Dosage: 10 MG
     Route: 048
  3. XANAX [Concomitant]
     Indication: ANXIETY
     Route: 048
  4. OYSTER SHELL CALCIUM [Concomitant]
     Indication: ROUTINE HEALTH MAINTENANCE
  5. TYLENOL-500 [Concomitant]
     Indication: ARTHRITIS
  6. TRAMADOL HCL [Concomitant]
     Indication: ARTHRITIS
  7. SPIRIVA [Suspect]
     Indication: CHRONIC OBSTRUCTIVE PULMONARY DISEASE
  8. TESSALON [Concomitant]
     Indication: COUGH
  9. SPIRIVA [Suspect]
     Indication: ASTHMA
     Dosage: 18 MCG
     Route: 055
     Dates: start: 20110501, end: 20110709
  10. TRAZODONE HYDROCHLORIDE [Concomitant]
     Indication: SLEEP DISORDER
     Route: 048
  11. POTASSIUM [Concomitant]
     Indication: FLUID RETENTION
     Dosage: 20 MEQ
     Route: 048
  12. TESSALON [Concomitant]
     Indication: ASTHMA
  13. XOPENEX [Concomitant]
     Route: 055
  14. FUROSEMIDE [Concomitant]
     Indication: ROUTINE HEALTH MAINTENANCE
     Dosage: 20 MG
     Route: 048
  15. ORPHENADERINE [Concomitant]
     Indication: MUSCLE RELAXANT THERAPY
  16. PULMICORT FLEX [Concomitant]
     Indication: ASTHMA
  17. SINGULAIR [Concomitant]
     Indication: ASTHMA
     Dosage: 10 MG
  18. TRAMADOL HCL [Concomitant]
     Indication: PAIN
  19. XOPENEX [Concomitant]
     Indication: ASTHMA
     Route: 055
  20. CENTRUM SILVER [Concomitant]
     Indication: ROUTINE HEALTH MAINTENANCE
     Route: 048
  21. ASPIRIN [Concomitant]
     Indication: ARTERIAL OCCLUSIVE DISEASE
     Route: 048

REACTIONS (7)
  - OROPHARYNGEAL PAIN [None]
  - GASTROOESOPHAGEAL REFLUX DISEASE [None]
  - HEADACHE [None]
  - NASAL CONGESTION [None]
  - CONSTIPATION [None]
  - DYSPHAGIA [None]
  - THROAT IRRITATION [None]
